FAERS Safety Report 8897511 (Version 1)
Quarter: 2012Q4

REPORT INFORMATION
  Report Type: 
  Country: US (occurrence: US)
  Receive Date: 20121108
  Receipt Date: 20121108
  Transmission Date: 20130627
  Serious: No
  Sender: FDA-Public Use
  Company Number: US-AMGEN-USASP2012038244

PATIENT
  Age: 71 Year
  Sex: Female

DRUGS (14)
  1. ENBREL [Suspect]
     Indication: RHEUMATOID ARTHRITIS
     Dosage: 50 mg, qwk
  2. CYMBALTA [Concomitant]
  3. SINGULAIR [Concomitant]
  4. PRIMIDONE [Concomitant]
     Dosage: UNK
  5. CLONAZEPAM [Concomitant]
     Dosage: UNK
  6. VERAPAMIL [Concomitant]
     Dosage: UNK
  7. PREVACID [Concomitant]
  8. RESTASIS [Concomitant]
  9. COMBIVENT [Concomitant]
  10. RHINOCORT [Concomitant]
  11. ADVAIR [Concomitant]
  12. ASTELIN [Concomitant]
  13. VOLTAREN [Concomitant]
  14. ALLEGRA [Concomitant]

REACTIONS (2)
  - Wound [Recovered/Resolved]
  - Fall [Recovered/Resolved]
